FAERS Safety Report 21747513 (Version 1)
Quarter: 2022Q4

REPORT INFORMATION
  Report Type: Spontaneous
  Country: US (occurrence: US)
  Receive Date: 20221219
  Receipt Date: 20221219
  Transmission Date: 20230113
  Serious: No
  Sender: FDA-Public Use
  Company Number: US-NOVEN PHARMACEUTICALS, INC.-2022-NOV-US000427

PATIENT
  Sex: Female
  Weight: 58.513 kg

DRUGS (2)
  1. MINIVELLE [Suspect]
     Active Substance: ESTRADIOL
     Indication: Menopausal symptoms prophylaxis
     Dosage: 0.075 MG, 1 PATCH, EVERY 3-4 DAYS
     Route: 062
  2. ROSUVASTATIN [Concomitant]
     Active Substance: ROSUVASTATIN
     Indication: Product used for unknown indication
     Dosage: UNKNOWN, UNK
     Route: 065

REACTIONS (4)
  - Feeling jittery [Recovered/Resolved]
  - Hyperhidrosis [Recovered/Resolved]
  - Product adhesion issue [Not Recovered/Not Resolved]
  - Device issue [Not Recovered/Not Resolved]
